FAERS Safety Report 5664733-1 (Version None)
Quarter: 2008Q1

REPORT INFORMATION
  Report Type: 
  Country: None (occurrence: None)
  Receive Date: 20080314
  Receipt Date: 20080307
  Transmission Date: 20080703
  Serious: Yes (Life-Threatening)
  Sender: FDA-Public Use
  Company Number: US-BRISTOL-MYERS SQUIBB COMPANY-14085559

PATIENT
  Age: 53 Year
  Sex: Female

DRUGS (3)
  1. ORENCIA [Suspect]
     Indication: RHEUMATOID ARTHRITIS
     Route: 042
     Dates: start: 20051205, end: 20070730
  2. ORENCIA [Suspect]
     Indication: SJOGREN'S SYNDROME
     Route: 042
     Dates: start: 20051205, end: 20070730
  3. ARAVA [Suspect]
     Dosage: ARAVA 10 MG QOD

REACTIONS (1)
  - THROMBOCYTOPENIA [None]
